FAERS Safety Report 10670804 (Version 1)
Quarter: 2014Q4

REPORT INFORMATION
  Report Type: Spontaneous
  Country: US (occurrence: None)
  Receive Date: 20141219
  Receipt Date: 20141219
  Transmission Date: 20150529
  Serious: Yes (Other)
  Sender: FDA-Public Use
  Company Number: PP-AE14-000481

PATIENT
  Age: 2 Month

DRUGS (2)
  1. LITTLE FEVERS BY LITTLE REMEDIES [Suspect]
     Active Substance: ACETAMINOPHEN
     Indication: PYREXIA
     Route: 048
  2. LITTLE FEVERS BY LITTLE REMEDIES [Suspect]
     Active Substance: ACETAMINOPHEN
     Indication: PAIN
     Route: 048

REACTIONS (1)
  - Anaphylactic shock [None]
